FAERS Safety Report 11767590 (Version 2)
Quarter: 2015Q4

REPORT INFORMATION
  Report Type: Spontaneous
  Country: HR (occurrence: HR)
  Receive Date: 20151123
  Receipt Date: 20151127
  Transmission Date: 20160304
  Serious: No
  Sender: FDA-Public Use
  Company Number: HR-NOVOPROD-470737

PATIENT
  Age: 9 Year
  Sex: Male

DRUGS (2)
  1. NOVOSEVEN [Suspect]
     Active Substance: COAGULATION FACTOR VIIA RECOMBINANT HUMAN
     Indication: OFF LABEL USE
  2. NOVOSEVEN [Suspect]
     Active Substance: COAGULATION FACTOR VIIA RECOMBINANT HUMAN
     Indication: EPISTAXIS
     Dosage: NOVO SEVEN 2X1 MG (50 KIU); 2 MG AFTERWARDS IF NECESSARY
     Route: 065

REACTIONS (1)
  - Off label use [Unknown]
